FAERS Safety Report 16514545 (Version 1)
Quarter: 2019Q3

REPORT INFORMATION
  Report Type: Report from Study
  Country: US (occurrence: US)
  Receive Date: 20190702
  Receipt Date: 20190702
  Transmission Date: 20191004
  Serious: Yes (Other)
  Sender: FDA-Public Use
  Company Number: US-UPSHER-SMITH LABORATORIES, LLC-2019USL00480

PATIENT
  Sex: Male

DRUGS (2)
  1. VIGADRONE [Suspect]
     Active Substance: VIGABATRIN
     Dosage: UNK
     Dates: start: 2019
  2. VIGADRONE [Suspect]
     Active Substance: VIGABATRIN
     Dosage: UNK
     Dates: start: 20190201, end: 2019

REACTIONS (1)
  - Eye movement disorder [Unknown]

NARRATIVE: CASE EVENT DATE: 2019
